FAERS Safety Report 21326160 (Version 1)
Quarter: 2022Q3

REPORT INFORMATION
  Report Type: Spontaneous
  Country: PT (occurrence: PT)
  Receive Date: 20220913
  Receipt Date: 20220913
  Transmission Date: 20221027
  Serious: Yes (Disabling, Other)
  Sender: FDA-Public Use
  Company Number: PT-INFARMED-T202208-3521

PATIENT
  Age: 22 Year
  Sex: Female
  Weight: 70 kg

DRUGS (2)
  1. BUPROPION [Suspect]
     Active Substance: BUPROPION
     Indication: Depression
     Dosage: 150 MILLIGRAM, EVERY MORNING
     Route: 048
     Dates: start: 20220721
  2. MEXAZOLAM [Concomitant]
     Active Substance: MEXAZOLAM
     Indication: Product used for unknown indication
     Dosage: UNK
     Route: 048

REACTIONS (6)
  - Myalgia [Unknown]
  - Arthralgia [Unknown]
  - Haematochezia [Unknown]
  - Suicidal ideation [Unknown]
  - Hypertension [Unknown]
  - Polyuria [Unknown]

NARRATIVE: CASE EVENT DATE: 20220729
